FAERS Safety Report 14669623 (Version 1)
Quarter: 2018Q1

REPORT INFORMATION
  Report Type: Spontaneous
  Country: US (occurrence: US)
  Receive Date: 20180322
  Receipt Date: 20180322
  Transmission Date: 20180509
  Serious: Yes (Other)
  Sender: FDA-Public Use
  Company Number: US-GLAXOSMITHKLINE-US2018046816

PATIENT
  Age: 67 Year
  Sex: Female

DRUGS (17)
  1. EPZICOM [Suspect]
     Active Substance: ABACAVIR SULFATE\LAMIVUDINE
     Indication: HIV INFECTION
     Dosage: 1 DF, QD
     Route: 048
     Dates: start: 1998
  2. CITALOPRAM [Concomitant]
     Active Substance: CITALOPRAM HYDROBROMIDE
  3. RANITIDINE. [Concomitant]
     Active Substance: RANITIDINE
  4. NAC (ACETYLCYSTEIN) [Concomitant]
  5. ZOFRAN [Concomitant]
     Active Substance: ONDANSETRON HYDROCHLORIDE
  6. AMLODIPINE [Concomitant]
     Active Substance: AMLODIPINE BESYLATE
  7. COMPAZINE [Concomitant]
     Active Substance: PROCHLORPERAZINE MALEATE
  8. NEVIRAPINE. [Concomitant]
     Active Substance: NEVIRAPINE
  9. TAMSULOSIN [Concomitant]
     Active Substance: TAMSULOSIN
  10. HYOSCYAMINE. [Concomitant]
     Active Substance: HYOSCYAMINE
  11. LISINOPRIL. [Concomitant]
     Active Substance: LISINOPRIL
  12. LORAZEPAM. [Concomitant]
     Active Substance: LORAZEPAM
  13. OXYCODONE [Concomitant]
     Active Substance: OXYCODONE
  14. PANTOPRAZOLE [Concomitant]
     Active Substance: PANTOPRAZOLE
  15. PREDNISONE. [Concomitant]
     Active Substance: PREDNISONE
  16. BUPROPION. [Concomitant]
     Active Substance: BUPROPION
  17. TRAZODONE [Concomitant]
     Active Substance: TRAZODONE HYDROCHLORIDE

REACTIONS (2)
  - Radiotherapy [Unknown]
  - Pancreatic carcinoma [Unknown]

NARRATIVE: CASE EVENT DATE: 20180308
